FAERS Safety Report 8927915 (Version 1)
Quarter: 2012Q4

REPORT INFORMATION
  Report Type: Spontaneous
  Country: US (occurrence: None)
  Receive Date: 20121126
  Receipt Date: 20121126
  Transmission Date: 20130627
  Serious: Yes (Hospitalization)
  Sender: FDA-Public Use
  Company Number: None

PATIENT
  Age: 87 Year
  Sex: Male
  Weight: 74.8 kg

DRUGS (2)
  1. FUROSEMIDE [Suspect]
     Indication: HYPERTENSION
     Dosage: 40 MG   EVERY DAY   PO
     Route: 048
     Dates: start: 20120322, end: 20121102
  2. HYDROCHLOROTHIAZIDE [Suspect]
     Indication: HYPERTENSION
     Dosage: 25 MG   EVERY DAY   PO
     Route: 048
     Dates: start: 19990506, end: 20121102

REACTIONS (2)
  - Renal failure acute [None]
  - Syncope [None]
